FAERS Safety Report 20369652 (Version 1)
Quarter: 2022Q1

REPORT INFORMATION
  Report Type: Spontaneous
  Country: US (occurrence: None)
  Receive Date: 20220121
  Receipt Date: 20220121
  Transmission Date: 20220424
  Serious: Yes (Hospitalization)
  Sender: FDA-Public Use
  Company Number: None

PATIENT
  Age: 61 Year
  Sex: Male
  Weight: 104.53 kg

DRUGS (20)
  1. CYCLOPHOSPHAMIDE [Suspect]
     Active Substance: CYCLOPHOSPHAMIDE
     Indication: Plasma cell myeloma
     Dosage: OTHER FREQUENCY : WEELY FOR 3 WEEKS;?
     Route: 048
     Dates: start: 20211130
  2. MORPHINE [Concomitant]
     Active Substance: MORPHINE
  3. OXYCODONE [Concomitant]
     Active Substance: OXYCODONE
  4. GABAPENTIN [Concomitant]
     Active Substance: GABAPENTIN
  5. VITAMIN C [Concomitant]
     Active Substance: ASCORBIC ACID
  6. GARLIC [Concomitant]
     Active Substance: GARLIC
  7. MIRALAX [Concomitant]
     Active Substance: POLYETHYLENE GLYCOL 3350
  8. PROMETHAZINE [Concomitant]
     Active Substance: PROMETHAZINE HYDROCHLORIDE
  9. SENOKOT [Concomitant]
     Active Substance: SENNOSIDES
  10. VITAMINS [Concomitant]
     Active Substance: VITAMINS
  11. LASIX [Concomitant]
     Active Substance: FUROSEMIDE
  12. LISINOPRIL [Concomitant]
     Active Substance: LISINOPRIL
  13. ZOFRAN [Concomitant]
     Active Substance: ONDANSETRON HYDROCHLORIDE
  14. POTASSIUM CHLORIDE [Concomitant]
     Active Substance: POTASSIUM CHLORIDE
  15. CYCLOPHOSPHAMIDE [Concomitant]
     Active Substance: CYCLOPHOSPHAMIDE
  16. XGEVA [Concomitant]
     Active Substance: DENOSUMAB
  17. DECADRON [Concomitant]
     Active Substance: DEXAMETHASONE
  18. ACYCLOVIR [Concomitant]
     Active Substance: ACYCLOVIR
  19. OXYCODONE [Concomitant]
     Active Substance: OXYCODONE
  20. NINLARO [Concomitant]
     Active Substance: IXAZOMIB CITRATE

REACTIONS (3)
  - Pneumonia viral [None]
  - Cardiac failure congestive [None]
  - Disease complication [None]

NARRATIVE: CASE EVENT DATE: 20220121
